FAERS Safety Report 6308891-4 (Version None)
Quarter: 2009Q3

REPORT INFORMATION
  Report Type: 
  Country: None (occurrence: None)
  Receive Date: 20090813
  Receipt Date: 20090302
  Transmission Date: 20100115
  Serious: No
  Sender: FDA-Public Use
  Company Number: US-ALLERGAN-0902726US

PATIENT
  Age: 88 Year
  Sex: Female

DRUGS (5)
  1. COMBIGAN [Suspect]
     Indication: GLAUCOMA
     Dosage: UNK, BID (QAM AND QPM)
     Route: 047
     Dates: start: 20090203, end: 20090209
  2. COMBIGAN [Suspect]
     Dosage: UNK, BID (QAM AND QPM)
     Route: 047
  3. AZOPT [Concomitant]
     Indication: GLAUCOMA
     Dosage: UNK, TID
  4. LUMIGAN [Concomitant]
     Indication: GLAUCOMA
     Dosage: UNK, BID
     Route: 047
  5. LUMIGAN [Concomitant]
     Dosage: UNK, QD
     Route: 047

REACTIONS (4)
  - EYE DISORDER [None]
  - EYE INFLAMMATION [None]
  - HYPERSENSITIVITY [None]
  - OCULAR HYPERAEMIA [None]
